FAERS Safety Report 7262847-6 (Version None)
Quarter: 2011Q1

REPORT INFORMATION
  Report Type: 
  Country: None (occurrence: None)
  Receive Date: 20110130
  Receipt Date: 20100909
  Transmission Date: 20110831
  Serious: No
  Sender: FDA-Public Use
  Company Number: US-ABBOTT-10P-163-0670718-00

PATIENT
  Sex: Female
  Weight: 59.02 kg

DRUGS (2)
  1. PREDNISONE [Concomitant]
     Indication: CROHN'S DISEASE
  2. HUMIRA [Suspect]
     Indication: CROHN'S DISEASE
     Dosage: ONCE
     Dates: start: 20100907, end: 20100907

REACTIONS (2)
  - INJECTION SITE HAEMORRHAGE [None]
  - DEVICE MALFUNCTION [None]
